FAERS Safety Report 8053946-X (Version None)
Quarter: 2012Q1

REPORT INFORMATION
  Report Type: 
  Country: None (occurrence: None)
  Receive Date: 20120118
  Receipt Date: 20120108
  Transmission Date: 20120608
  Serious: Yes (Death)
  Sender: FDA-Public Use
  Company Number: TW-BAXTER-2011BH039968

PATIENT
  Sex: Male

DRUGS (4)
  1. DIANEAL [Suspect]
     Indication: PERITONEAL DIALYSIS
     Route: 033
     Dates: start: 20080801
  2. DIANEAL [Suspect]
     Route: 033
     Dates: start: 20080801
  3. EXTRANEAL [Suspect]
     Route: 033
     Dates: start: 20080801
  4. EXTRANEAL [Suspect]
     Indication: PERITONEAL DIALYSIS
     Route: 033
     Dates: start: 20080801

REACTIONS (1)
  - ACUTE MYOCARDIAL INFARCTION [None]
